FAERS Safety Report 7081138-X (Version None)
Quarter: 2010Q4

REPORT INFORMATION
  Report Type: 
  Country: None (occurrence: None)
  Receive Date: 20101103
  Receipt Date: 20101101
  Transmission Date: 20110411
  Serious: Yes (Death, Life-Threatening, Hospitalization)
  Sender: FDA-Public Use
  Company Number: A0890367A

PATIENT
  Age: 61 Year
  Sex: Female
  Weight: 76 kg

DRUGS (1)
  1. PAZOPANIB [Suspect]
     Indication: THYROID CANCER
     Dosage: 800MG PER DAY
     Route: 048
     Dates: start: 20101001, end: 20101006

REACTIONS (5)
  - DYSPNOEA [None]
  - HYPOTENSION [None]
  - MYOCARDIAL INFARCTION [None]
  - NON-CARDIAC CHEST PAIN [None]
  - SINUS TACHYCARDIA [None]
